FAERS Safety Report 13962007 (Version 2)
Quarter: 2017Q3

REPORT INFORMATION
  Report Type: Report from Study
  Country: TW (occurrence: TW)
  Receive Date: 20170912
  Receipt Date: 20170928
  Transmission Date: 20171128
  Serious: Yes (Other)
  Sender: FDA-Public Use
  Company Number: PHHY2017TW105885

PATIENT
  Age: 69 Year
  Sex: Male
  Weight: 76 kg

DRUGS (18)
  1. BISACODYL. [Concomitant]
     Active Substance: BISACODYL
     Dosage: 6 MG, UNK
     Route: 048
     Dates: start: 20160727
  2. GENTAMICIN. [Concomitant]
     Active Substance: GENTAMICIN
     Indication: FOLLICULITIS
     Dosage: 0.1 %, UNK
     Route: 061
     Dates: start: 20170405
  3. SENNOSIDE [Concomitant]
     Active Substance: SENNOSIDES
     Dosage: 30 MG, UNK
     Route: 048
     Dates: start: 20160727
  4. BISACODYL. [Concomitant]
     Active Substance: BISACODYL
     Indication: CONSTIPATION
     Dosage: 4 MG, UNK
     Route: 048
     Dates: start: 20160627, end: 20160726
  5. FAMOTIDINE. [Concomitant]
     Active Substance: FAMOTIDINE
     Indication: REGURGITATION
     Dosage: 20 MG, UNK
     Route: 048
     Dates: start: 20160222, end: 20160307
  6. TASIGNA [Suspect]
     Active Substance: NILOTINIB
     Indication: CHRONIC MYELOID LEUKAEMIA
     Dosage: 300 MG, BID
     Route: 048
     Dates: start: 20160204
  7. CLINDAMYCIN. [Concomitant]
     Active Substance: CLINDAMYCIN
     Indication: FOLLICULITIS
     Dosage: UNK
     Route: 061
     Dates: start: 20160411, end: 20160627
  8. LACTULOSE. [Concomitant]
     Active Substance: LACTULOSE
     Dosage: UNK
     Route: 048
     Dates: start: 20160822, end: 20161017
  9. NITROGLYCERIN. [Concomitant]
     Active Substance: NITROGLYCERIN
     Indication: CHEST DISCOMFORT
     Dosage: 0.6 MG, UNK
     Route: 048
  10. SENNOSIDE [Concomitant]
     Active Substance: SENNOSIDES
     Indication: CONSTIPATION
     Dosage: 20 MG, UNK
     Route: 048
     Dates: start: 20160627, end: 20160726
  11. ASPIRIN. [Concomitant]
     Active Substance: ASPIRIN
     Indication: CHEST DISCOMFORT
     Dosage: 100 MG, UNK
     Route: 048
     Dates: start: 20160222, end: 20160307
  12. LACTULOSE. [Concomitant]
     Active Substance: LACTULOSE
     Indication: CONSTIPATION
     Dosage: 10 ML, UNK
     Route: 048
     Dates: start: 20160727, end: 20160821
  13. FAMOTIDINE. [Concomitant]
     Active Substance: FAMOTIDINE
     Dosage: 20 MG, UNK
     Route: 048
     Dates: start: 20160502
  14. ACETAMINOPHEN. [Concomitant]
     Active Substance: ACETAMINOPHEN
     Indication: PAIN
     Dosage: 500 MG, UNK
     Route: 048
     Dates: start: 20160215, end: 20160222
  15. CLINDAMYCIN. [Concomitant]
     Active Substance: CLINDAMYCIN
     Dosage: UNK
     Route: 061
     Dates: start: 20161114, end: 20170404
  16. SUCRALFATE. [Concomitant]
     Active Substance: SUCRALFATE
     Indication: EPIGASTRIC DISCOMFORT
     Dosage: 500 MG, UNK
     Route: 048
     Dates: start: 20170703
  17. NORMACOL PLUS [Concomitant]
     Indication: CONSTIPATION
     Dosage: 7 G, UNK
     Route: 048
     Dates: start: 20170206, end: 20170305
  18. NORMACOL PLUS [Concomitant]
     Dosage: 7 G, UNK
     Route: 048
     Dates: start: 20170306

REACTIONS (1)
  - Conjunctival haemorrhage [Recovered/Resolved]

NARRATIVE: CASE EVENT DATE: 20160820
